FAERS Safety Report 8107951-5 (Version None)
Quarter: 2012Q1

REPORT INFORMATION
  Report Type: 
  Country: None (occurrence: None)
  Receive Date: 20120202
  Receipt Date: 20120126
  Transmission Date: 20120608
  Serious: Yes (Hospitalization)
  Sender: FDA-Public Use
  Company Number: JP-ROCHE-763218

PATIENT
  Sex: Female
  Weight: 42 kg

DRUGS (14)
  1. PARAPLATIN [Concomitant]
     Indication: LUNG ADENOCARCINOMA METASTATIC
     Route: 041
     Dates: start: 20101021, end: 20101021
  2. NOVAMIN [Concomitant]
     Route: 048
     Dates: start: 20101018, end: 20101021
  3. PACLITAXEL [Concomitant]
     Indication: LUNG ADENOCARCINOMA METASTATIC
     Route: 041
     Dates: start: 20101021, end: 20101021
  4. ALOXI [Concomitant]
     Route: 042
     Dates: start: 20101021, end: 20101021
  5. AVASTIN [Suspect]
     Indication: LUNG ADENOCARCINOMA METASTATIC
     Route: 041
     Dates: start: 20101021, end: 20101021
  6. DECADRON [Concomitant]
     Route: 041
     Dates: start: 20101021, end: 20101021
  7. ORGOTEIN [Concomitant]
     Dosage: FOR UNCERTAIN DOSAGE AND TON
     Route: 048
  8. OXINORM (JAPAN) [Concomitant]
     Indication: BONE PAIN
     Route: 048
     Dates: start: 20101018
  9. FAMOTIDINE [Concomitant]
     Route: 041
     Dates: start: 20101021, end: 20101021
  10. MAGNESIUM OXIDE [Concomitant]
     Dosage: DRUG REPORTED: JU-KAMA
     Route: 048
  11. POLARAMINE [Concomitant]
     Route: 041
     Dates: start: 20101021, end: 20101021
  12. OXYCONTIN [Concomitant]
     Indication: BONE PAIN
     Route: 048
  13. LOXONIN [Concomitant]
     Indication: CANCER PAIN
     Dosage: DOSE FORM: PERORAL AGENT
     Route: 048
     Dates: start: 20101005, end: 20101022
  14. CYTOTEC [Concomitant]
     Indication: CANCER PAIN
     Route: 048
     Dates: start: 20101005, end: 20101022

REACTIONS (1)
  - PNEUMOTHORAX [None]
